FAERS Safety Report 19038963 (Version 1)
Quarter: 2021Q1

REPORT INFORMATION
  Report Type: Report from Study
  Country: US (occurrence: US)
  Receive Date: 20210322
  Receipt Date: 20210322
  Transmission Date: 20210420
  Serious: No
  Sender: FDA-Public Use
  Company Number: US-GLAXOSMITHKLINE-US2020AMR235298

PATIENT
  Age: 59 Year
  Sex: Male

DRUGS (1)
  1. BELANTAMAB MAFODOTIN. [Suspect]
     Active Substance: BELANTAMAB MAFODOTIN
     Indication: PRODUCT USED FOR UNKNOWN INDICATION
     Dosage: UNK
     Route: 065

REACTIONS (6)
  - Photophobia [Unknown]
  - Vision blurred [Unknown]
  - Keratopathy [Unknown]
  - Dry eye [Unknown]
  - Visual acuity reduced [Unknown]
  - Night blindness [Unknown]

NARRATIVE: CASE EVENT DATE: 202010
